FAERS Safety Report 9028543 (Version 2)
Quarter: 2013Q3

REPORT INFORMATION
  Report Type: Report from Study
  Country: US (occurrence: US)
  Receive Date: 20130124
  Receipt Date: 20130802
  Transmission Date: 20140515
  Serious: Yes (Death, Other)
  Sender: FDA-Public Use
  Company Number: US-ROCHE-1182014

PATIENT
  Sex: 0

DRUGS (6)
  1. RITUXIMAB [Suspect]
     Indication: CHRONIC LYMPHOCYTIC LEUKAEMIA
     Dosage: ON DAY 1 AND REPEATED EVERY 28 DAYS FOR 6 CYCLES
     Route: 042
  2. RITUXIMAB [Suspect]
     Indication: LYMPHOCYTIC LYMPHOMA
  3. BENDAMUSTINE [Suspect]
     Indication: CHRONIC LYMPHOCYTIC LEUKAEMIA
     Dosage: DAY 1
     Route: 042
  4. BENDAMUSTINE [Suspect]
     Indication: LYMPHOCYTIC LYMPHOMA
     Dosage: DAY 2
     Route: 042
  5. LENALIDOMIDE [Concomitant]
     Indication: CHRONIC LYMPHOCYTIC LEUKAEMIA
     Dosage: 5-10MG/DAY FOR 28 CYCLES.
     Route: 048
  6. LENALIDOMIDE [Concomitant]
     Indication: LYMPHOCYTIC LYMPHOMA

REACTIONS (9)
  - Pneumonia [Fatal]
  - Cardiac failure [Fatal]
  - Neutropenia [Unknown]
  - Thrombocytopenia [Unknown]
  - Weight decreased [Unknown]
  - Failure to thrive [Unknown]
  - Anaemia [Unknown]
  - Febrile neutropenia [Unknown]
  - Infection [Unknown]
